FAERS Safety Report 17169978 (Version 6)
Quarter: 2022Q1

REPORT INFORMATION
  Report Type: Report from Study
  Country: US (occurrence: US)
  Receive Date: 20191218
  Receipt Date: 20220217
  Transmission Date: 20220423
  Serious: No
  Sender: FDA-Public Use
  Company Number: NVSC2019US072880

PATIENT
  Age: 57 Year
  Sex: Female

DRUGS (3)
  1. GILENYA [Suspect]
     Active Substance: FINGOLIMOD HYDROCHLORIDE
     Indication: Relapsing-remitting multiple sclerosis
     Dosage: 0.5 MG, QW2
     Route: 048
  2. GILENYA [Suspect]
     Active Substance: FINGOLIMOD HYDROCHLORIDE
     Indication: Multiple sclerosis
     Dosage: 0.5 MG, QD
     Route: 048
     Dates: start: 20130510
  3. GILENYA [Suspect]
     Active Substance: FINGOLIMOD HYDROCHLORIDE
     Dosage: 0.5 MG, QW
     Route: 048
     Dates: start: 20130513

REACTIONS (9)
  - Blood pressure decreased [Unknown]
  - White blood cell count increased [Unknown]
  - Osteoporosis [Unknown]
  - Vitamin D decreased [Unknown]
  - Off label use [Unknown]
  - Hypertension [Unknown]
  - Full blood count decreased [Recovered/Resolved]
  - Fatigue [Unknown]
  - Visual impairment [Not Recovered/Not Resolved]

NARRATIVE: CASE EVENT DATE: 20130510
